FAERS Safety Report 19584523 (Version 2)
Quarter: 2021Q3

REPORT INFORMATION
  Report Type: Spontaneous
  Country: TR (occurrence: TR)
  Receive Date: 20210720
  Receipt Date: 20210817
  Transmission Date: 20211014
  Serious: Yes (Hospitalization)
  Sender: FDA-Public Use
  Company Number: TR-NOVOPROD-819594

PATIENT
  Age: 41 Year
  Sex: Female
  Weight: 65 kg

DRUGS (4)
  1. GLIFOR [METFORMIN HYDROCHLORIDE] [Concomitant]
     Indication: WEIGHT CONTROL
     Dosage: 500 MG, BID
     Route: 048
  2. PROZAC [Concomitant]
     Active Substance: FLUOXETINE HYDROCHLORIDE
     Indication: OBSESSIVE-COMPULSIVE DISORDER
     Dosage: TABLET 3 TIMES A DAY
     Route: 048
  3. THINCAL [Concomitant]
     Active Substance: ORLISTAT
     Indication: WEIGHT CONTROL
     Dosage: TABLET 2 TIMES A DAY
     Route: 048
  4. SAXENDA [Suspect]
     Active Substance: LIRAGLUTIDE
     Indication: WEIGHT CONTROL
     Dosage: 0.60 MG, QD
     Route: 058

REACTIONS (3)
  - Pruritus [Recovered/Resolved]
  - Erythema [Recovered/Resolved]
  - Blister [Recovered/Resolved]
